FAERS Safety Report 6923092-4 (Version None)
Quarter: 2010Q3

REPORT INFORMATION
  Report Type: 
  Country: None (occurrence: None)
  Receive Date: 20100813
  Receipt Date: 20100809
  Transmission Date: 20110219
  Serious: Yes (Death, Other)
  Sender: FDA-Public Use
  Company Number: DE-CELGENEUS-062-50794-10080718

PATIENT

DRUGS (3)
  1. VIDAZA [Suspect]
     Route: 058
  2. IDARUBICIN HCL [Suspect]
     Route: 065
  3. ETOPOSIDE [Suspect]
     Route: 065

REACTIONS (5)
  - CONVULSION [None]
  - DEATH [None]
  - FEBRILE NEUTROPENIA [None]
  - INJECTION SITE REACTION [None]
  - MUCOSAL INFLAMMATION [None]
